FAERS Safety Report 15990013 (Version 3)
Quarter: 2019Q2

REPORT INFORMATION
  Report Type: Spontaneous
  Country: DE (occurrence: DE)
  Receive Date: 20190221
  Receipt Date: 20190521
  Transmission Date: 20190711
  Serious: Yes (Hospitalization, Other)
  Sender: FDA-Public Use
  Company Number: DE-FERRINGPH-2019FE00701

PATIENT

DRUGS (4)
  1. MENOGON HP [Suspect]
     Active Substance: MENOTROPINS
     Indication: ASSISTED REPRODUCTIVE TECHNOLOGY
     Dosage: 150 IU, DAILY
     Route: 058
     Dates: start: 20180518, end: 20180602
  2. PUREGON                            /01348901/ [Suspect]
     Active Substance: FOLLITROPIN
     Indication: ASSISTED REPRODUCTIVE TECHNOLOGY
     Dosage: 100-200 IU DAILY
     Route: 058
     Dates: start: 20180527, end: 20180602
  3. UTROGEST [Concomitant]
     Active Substance: PROGESTERONE
     Indication: LUTEAL PHASE DEFICIENCY
     Dosage: 200 MG, 3 TIMES DAILY
     Route: 067
     Dates: start: 20180602, end: 20180612
  4. CETROTID [Suspect]
     Active Substance: CETRORELIX ACETATE
     Indication: ASSISTED REPRODUCTIVE TECHNOLOGY
     Dosage: 0.25 - 0.75 MG 2-3 TIMES DAILY
     Route: 058
     Dates: start: 20180527, end: 20180602

REACTIONS (1)
  - Peritonitis [Recovered/Resolved]
